FAERS Safety Report 7817869-0 (Version None)
Quarter: 2011Q4

REPORT INFORMATION
  Report Type: 
  Country: None (occurrence: None)
  Receive Date: 20111017
  Receipt Date: 20111005
  Transmission Date: 20120403
  Serious: Yes (Hospitalization, Disabling)
  Sender: FDA-Public Use
  Company Number: US-MERCK-1103USA02110

PATIENT
  Age: 58 Year
  Sex: Female

DRUGS (14)
  1. FOSAMAX [Suspect]
     Indication: OSTEOPENIA
     Route: 048
     Dates: start: 20010601, end: 20061001
  2. ALENDRONATE SODIUM [Suspect]
     Indication: OSTEOPENIA
     Route: 048
     Dates: start: 20080701, end: 20081101
  3. CYANOCOBALAMIN [Concomitant]
     Route: 065
     Dates: start: 20010101
  4. CALTRATE + D [Concomitant]
     Route: 065
     Dates: start: 20010101, end: 20070101
  5. ESTROGENS (UNSPECIFIED) [Concomitant]
     Route: 065
     Dates: start: 20000501
  6. FOLIC ACID [Concomitant]
     Route: 065
     Dates: start: 20010101, end: 20070101
  7. GERITOL COMPLETE [Concomitant]
     Route: 065
     Dates: start: 20001201
  8. FOSAMAX [Suspect]
     Route: 048
     Dates: start: 20080701, end: 20081101
  9. BONIVA [Suspect]
     Indication: OSTEOPENIA
     Route: 048
     Dates: start: 20061101, end: 20080601
  10. PYRIDOXINE [Concomitant]
     Route: 065
     Dates: start: 20010101, end: 20070101
  11. VITAMIN D (UNSPECIFIED) [Concomitant]
     Route: 065
     Dates: start: 20010101
  12. VITAMIN E [Concomitant]
     Route: 065
     Dates: start: 20010101, end: 20070101
  13. BONIVA [Suspect]
     Route: 048
     Dates: start: 20081101, end: 20100301
  14. ASCORBIC ACID [Concomitant]
     Route: 065
     Dates: start: 20011201

REACTIONS (18)
  - MYALGIA [None]
  - UPPER RESPIRATORY TRACT INFECTION [None]
  - OSTEONECROSIS OF JAW [None]
  - VITAMIN D DEFICIENCY [None]
  - ORAL DISORDER [None]
  - FOOT FRACTURE [None]
  - FEMUR FRACTURE [None]
  - RIB FRACTURE [None]
  - CHEST PAIN [None]
  - DYSPEPSIA [None]
  - BLOOD CHOLESTEROL INCREASED [None]
  - EXOSTOSIS [None]
  - LOW TURNOVER OSTEOPATHY [None]
  - BREAST DISORDER [None]
  - BONE LOSS [None]
  - BRONCHITIS [None]
  - PYOGENIC GRANULOMA [None]
  - BACK PAIN [None]
